FAERS Safety Report 10395802 (Version 2)
Quarter: 2014Q4

REPORT INFORMATION
  Report Type: Spontaneous
  Country: US (occurrence: US)
  Receive Date: 20140820
  Receipt Date: 20141010
  Transmission Date: 20150528
  Serious: Yes (Hospitalization, Other)
  Sender: FDA-Public Use
  Company Number: US-BAYER-2014-123877

PATIENT
  Age: 29 Year
  Sex: Female
  Weight: 65.76 kg

DRUGS (1)
  1. MIRENA [Suspect]
     Active Substance: LEVONORGESTREL
     Indication: CONTRACEPTION
     Dosage: 20 MCG/24HR, CONT
     Route: 015
     Dates: start: 20100826, end: 20120328

REACTIONS (7)
  - Embedded device [None]
  - Drug ineffective [None]
  - Abdominal adhesions [None]
  - Injury [None]
  - Ectopic pregnancy with contraceptive device [None]
  - Pelvic pain [None]
  - Pain [None]

NARRATIVE: CASE EVENT DATE: 20120328
